FAERS Safety Report 11701034 (Version 1)
Quarter: 2015Q4

REPORT INFORMATION
  Report Type: Spontaneous
  Country: GB (occurrence: GB)
  Receive Date: 20151105
  Receipt Date: 20151105
  Transmission Date: 20160304
  Serious: Yes (Hospitalization)
  Sender: FDA-Public Use
  Company Number: GB-ASTRAZENECA-2015SF04615

PATIENT
  Age: 56 Year
  Sex: Female
  Weight: 85.8 kg

DRUGS (4)
  1. NOVOMIX [Concomitant]
     Active Substance: INSULIN ASPART
  2. ASPIRIN. [Concomitant]
     Active Substance: ASPIRIN
  3. SIMVASTATIN. [Concomitant]
     Active Substance: SIMVASTATIN
  4. DAPAGLIFLOZIN [Suspect]
     Active Substance: DAPAGLIFLOZIN
     Indication: INSULIN-REQUIRING TYPE 2 DIABETES MELLITUS
     Route: 048
     Dates: start: 20140501, end: 20150910

REACTIONS (1)
  - Diabetic ketoacidosis [Recovered/Resolved]

NARRATIVE: CASE EVENT DATE: 20150317
